FAERS Safety Report 10169702 (Version 12)
Quarter: 2016Q1

REPORT INFORMATION
  Report Type: Spontaneous
  Country: BR (occurrence: BR)
  Receive Date: 20140513
  Receipt Date: 20160121
  Transmission Date: 20160525
  Serious: Yes (Hospitalization, Other)
  Sender: FDA-Public Use
  Company Number: BR-PFIZER INC-2014060060

PATIENT
  Age: 64 Year
  Sex: Male
  Weight: 88 kg

DRUGS (3)
  1. SUTENT [Suspect]
     Active Substance: SUNITINIB MALATE
     Dosage: 50 MG, CYCLIC (ALTERNATE DAYS, 2 WEEKS ON/1 WEEK OFF)
  2. SUTENT [Suspect]
     Active Substance: SUNITINIB MALATE
     Indication: METASTATIC RENAL CELL CARCINOMA
     Dosage: 50 MG, CYCLIC (4 WEEKS ON/1 WEEK OFF)
     Route: 048
     Dates: start: 201402
  3. SUTENT [Suspect]
     Active Substance: SUNITINIB MALATE
     Dosage: 50 MG, CYCLIC (DAILY, 2 WEEKS ON/1 WEEK OFF)
     Route: 048
     Dates: start: 201402

REACTIONS (49)
  - Femur fracture [Unknown]
  - Skin depigmentation [Recovering/Resolving]
  - Fluid intake reduced [Unknown]
  - Palmar-plantar erythrodysaesthesia syndrome [Unknown]
  - Oral pain [Unknown]
  - Thyroid disorder [Recovering/Resolving]
  - Bone disorder [Unknown]
  - Eye irritation [Not Recovered/Not Resolved]
  - Oropharyngeal pain [Recovering/Resolving]
  - Diarrhoea [Not Recovered/Not Resolved]
  - Hypersomnia [Unknown]
  - Blister [Unknown]
  - Skin exfoliation [Unknown]
  - Hypertension [Recovering/Resolving]
  - Blood pressure fluctuation [Not Recovered/Not Resolved]
  - Anorectal disorder [Unknown]
  - Blood thyroid stimulating hormone increased [Unknown]
  - Platelet count decreased [Recovered/Resolved]
  - Hypophagia [Unknown]
  - Chills [Unknown]
  - Peripheral swelling [Not Recovered/Not Resolved]
  - Gastrooesophageal reflux disease [Unknown]
  - Swelling [Recovering/Resolving]
  - Pain in extremity [Unknown]
  - Weight decreased [Unknown]
  - Throat tightness [Not Recovered/Not Resolved]
  - Asthenia [Unknown]
  - Joint swelling [Unknown]
  - Yellow skin [Unknown]
  - Dysphagia [Unknown]
  - Abdominal pain upper [Unknown]
  - Haemoglobin decreased [Unknown]
  - Hyperkeratosis [Unknown]
  - Dysentery [Unknown]
  - Swelling face [Not Recovered/Not Resolved]
  - Hyperkeratosis [Unknown]
  - Musculoskeletal pain [Unknown]
  - Disease progression [Unknown]
  - Diarrhoea haemorrhagic [Not Recovered/Not Resolved]
  - Constipation [Not Recovered/Not Resolved]
  - Headache [Not Recovered/Not Resolved]
  - Skin lesion [Unknown]
  - Gait disturbance [Unknown]
  - Musculoskeletal discomfort [Unknown]
  - Dyspepsia [Unknown]
  - Skin sensitisation [Unknown]
  - Metastatic renal cell carcinoma [Unknown]
  - Erythema [Unknown]
  - White blood cell count decreased [Unknown]

NARRATIVE: CASE EVENT DATE: 2014
